FAERS Safety Report 15728901 (Version 1)
Quarter: 2018Q4

REPORT INFORMATION
  Report Type: Spontaneous
  Country: US (occurrence: US)
  Receive Date: 20181214
  Receipt Date: 20181214
  Transmission Date: 20190205
  Serious: Yes (Disabling)
  Sender: FDA-Public Use
  Company Number: None

PATIENT
  Age: 59 Year
  Sex: Male
  Weight: 81 kg

DRUGS (4)
  1. LEVOFLOXACIN 500MG TABLETS [Suspect]
     Active Substance: LEVOFLOXACIN
     Indication: EPIDIDYMITIS
     Dosage: ?          QUANTITY:1 TABLET(S);?
     Route: 048
     Dates: start: 20170905, end: 20171005
  2. CIPROFLOXACIN. [Suspect]
     Active Substance: CIPROFLOXACIN
     Indication: EPIDIDYMITIS
     Dosage: ?          QUANTITY:1 TABLET(S);?
     Route: 048
     Dates: start: 20171011, end: 20171225
  3. LEVOFLOXACIN 500MG TABLETS [Suspect]
     Active Substance: LEVOFLOXACIN
     Indication: PROSTATE INFECTION
     Dosage: ?          QUANTITY:1 TABLET(S);?
     Route: 048
     Dates: start: 20170905, end: 20171005
  4. CIPROFLOXACIN. [Suspect]
     Active Substance: CIPROFLOXACIN
     Indication: PROSTATE INFECTION
     Dosage: ?          QUANTITY:1 TABLET(S);?
     Route: 048
     Dates: start: 20171011, end: 20171225

REACTIONS (16)
  - Toothache [None]
  - Bone pain [None]
  - Muscle atrophy [None]
  - Oral discomfort [None]
  - Skin burning sensation [None]
  - Depersonalisation/derealisation disorder [None]
  - Diarrhoea [None]
  - Tinnitus [None]
  - Hypertension [None]
  - Arthralgia [None]
  - Tendon pain [None]
  - Insomnia [None]
  - Negative thoughts [None]
  - Fatigue [None]
  - Tongue discomfort [None]
  - Pain in jaw [None]

NARRATIVE: CASE EVENT DATE: 20171225
